FAERS Safety Report 5307273-1 (Version None)
Quarter: 2007Q2

REPORT INFORMATION
  Report Type: 
  Country: None (occurrence: None)
  Receive Date: 20070425
  Receipt Date: 20070420
  Transmission Date: 20071010
  Serious: Yes (Other)
  Sender: FDA-Public Use
  Company Number: JP-BRISTOL-MYERS SQUIBB COMPANY-13750104

PATIENT
  Age: 9 Year
  Sex: Female

DRUGS (8)
  1. ENDOXAN [Suspect]
     Indication: SYSTEMIC LUPUS ERYTHEMATOSUS
     Route: 041
     Dates: start: 20051028, end: 20051028
  2. ENDOXAN [Suspect]
     Indication: LUPUS NEPHRITIS
     Route: 041
     Dates: start: 20051028, end: 20051028
  3. PREDONINE [Concomitant]
     Indication: LUPUS NEPHRITIS
     Route: 048
     Dates: start: 20050801
  4. PREDONINE [Concomitant]
     Indication: SYSTEMIC LUPUS ERYTHEMATOSUS
     Route: 048
     Dates: start: 20050801
  5. BREDININ [Concomitant]
     Dates: start: 20050901
  6. MEVALOTIN [Concomitant]
     Dates: start: 20050901
  7. ALFAROL [Concomitant]
     Dates: start: 20050801
  8. BENET [Concomitant]
     Dates: start: 20050901

REACTIONS (8)
  - BLOOD POTASSIUM DECREASED [None]
  - DEPRESSED LEVEL OF CONSCIOUSNESS [None]
  - HEADACHE [None]
  - HYPONATRAEMIA [None]
  - NAUSEA [None]
  - PRURIGO [None]
  - STATUS EPILEPTICUS [None]
  - VOMITING [None]
